FAERS Safety Report 16762959 (Version 1)
Quarter: 2019Q3

REPORT INFORMATION
  Report Type: Spontaneous
  Country: US (occurrence: US)
  Receive Date: 20190902
  Receipt Date: 20190902
  Transmission Date: 20191005
  Serious: Yes (Other)
  Sender: FDA-Public Use
  Company Number: US-ROCHE-2393915

PATIENT
  Sex: Female

DRUGS (2)
  1. OCREVUS [Suspect]
     Active Substance: OCRELIZUMAB
     Dosage: ONGOING: UNKNOWN
     Route: 065
     Dates: start: 20190507
  2. OCREVUS [Suspect]
     Active Substance: OCRELIZUMAB
     Indication: PRODUCT USED FOR UNKNOWN INDICATION
     Dosage: ONGOING: UNKNOWN
     Route: 065
     Dates: start: 20180319

REACTIONS (2)
  - Neoplasm malignant [Unknown]
  - Hepatic failure [Unknown]
